FAERS Safety Report 19101380 (Version 1)
Quarter: 2021Q2

REPORT INFORMATION
  Report Type: Spontaneous
  Country: US (occurrence: US)
  Receive Date: 20210406
  Receipt Date: 20210406
  Transmission Date: 20210717
  Serious: Yes (Death)
  Sender: FDA-Public Use
  Company Number: None

PATIENT
  Age: 58 Year
  Sex: Female

DRUGS (4)
  1. ARMOUR THYROID [Suspect]
     Active Substance: THYROID, PORCINE
  2. FUROSEMIDE. [Suspect]
     Active Substance: FUROSEMIDE
  3. LAPATINIB TAB 250MG [Suspect]
     Active Substance: LAPATINIB
     Route: 048
     Dates: start: 20210312, end: 20210325
  4. BISOPROLOL [Suspect]
     Active Substance: BISOPROLOL

REACTIONS (1)
  - Death [None]

NARRATIVE: CASE EVENT DATE: 20210325
